FAERS Safety Report 5223974-8 (Version None)
Quarter: 2007Q1

REPORT INFORMATION
  Report Type: 
  Country: None (occurrence: None)
  Receive Date: 20070130
  Receipt Date: 20070124
  Transmission Date: 20070707
  Serious: Yes (Other)
  Sender: FDA-Public Use
  Company Number: NL-GLAXOSMITHKLINE-B0440934A

PATIENT
  Age: 47 Year
  Sex: Male

DRUGS (5)
  1. BUPROPION HCL [Suspect]
     Dates: start: 20000728, end: 20000801
  2. SELEKTINE [Concomitant]
     Dosage: 40MG PER DAY
  3. ACENOCOUMAROL [Concomitant]
  4. ZESTRIL [Concomitant]
     Dosage: 10MG PER DAY
  5. OXAZEPAM [Concomitant]
     Dosage: 20MG PER DAY

REACTIONS (6)
  - ARRHYTHMIA [None]
  - DECREASED INTEREST [None]
  - DEPRESSION [None]
  - PALPITATIONS [None]
  - PARAESTHESIA [None]
  - SUICIDAL IDEATION [None]
